FAERS Safety Report 16363255 (Version 1)
Quarter: 2019Q2

REPORT INFORMATION
  Report Type: Spontaneous
  Country: AU (occurrence: AU)
  Receive Date: 20190528
  Receipt Date: 20190528
  Transmission Date: 20190711
  Serious: Yes (Other)
  Sender: FDA-Public Use
  Company Number: AU-ALLERGAN-1922192US

PATIENT
  Sex: Female

DRUGS (4)
  1. LEXAPRO [Suspect]
     Active Substance: ESCITALOPRAM OXALATE
     Indication: PRODUCT USED FOR UNKNOWN INDICATION
     Route: 065
  2. CITALOPRAM HYDROBROMIDE - BP [Suspect]
     Active Substance: CITALOPRAM HYDROBROMIDE
     Indication: PRODUCT USED FOR UNKNOWN INDICATION
     Route: 065
     Dates: start: 2000, end: 2004
  3. PROVERA [Interacting]
     Active Substance: MEDROXYPROGESTERONE ACETATE
     Indication: MENORRHAGIA
     Route: 065
     Dates: start: 20030919, end: 20031126
  4. CELEBREX [Concomitant]
     Active Substance: CELECOXIB
     Indication: BACK PAIN
     Route: 065
     Dates: start: 200001, end: 200103

REACTIONS (25)
  - Breast tenderness [Unknown]
  - Fatigue [Unknown]
  - Condition aggravated [Unknown]
  - Premenstrual syndrome [Unknown]
  - Vision blurred [Unknown]
  - Drug interaction [Recovered/Resolved]
  - Irritability [Recovered/Resolved]
  - Somnolence [Unknown]
  - Mental impairment [Unknown]
  - Suicidal ideation [Unknown]
  - Abdominal pain upper [Unknown]
  - Muscle spasms [Unknown]
  - Syncope [Unknown]
  - Condition aggravated [Unknown]
  - Confusional state [Unknown]
  - Dizziness [Unknown]
  - Headache [Unknown]
  - Nervousness [Unknown]
  - Disturbance in attention [Unknown]
  - Varicose vein [Unknown]
  - Anaemia [Unknown]
  - Depression [Unknown]
  - Diarrhoea [Unknown]
  - Infection [Unknown]
  - Pain in extremity [Recovered/Resolved]

NARRATIVE: CASE EVENT DATE: 200104
